FAERS Safety Report 6289204-3 (Version None)
Quarter: 2009Q3

REPORT INFORMATION
  Report Type: 
  Country: None (occurrence: None)
  Receive Date: 20090728
  Receipt Date: 20090714
  Transmission Date: 20100115
  Serious: Yes (Hospitalization)
  Sender: FDA-Public Use
  Company Number: MSTR-NO-0907S-0138

PATIENT
  Age: 65 Year
  Sex: Male

DRUGS (1)
  1. METASTRON [Suspect]
     Indication: BONE PAIN
     Dosage: SINGLE DOSE, I.V.
     Route: 042
     Dates: start: 20090625, end: 20090625

REACTIONS (2)
  - BLOOD CALCIUM INCREASED [None]
  - MALAISE [None]
